FAERS Safety Report 7996829 (Version 3)
Quarter: 2012Q4

REPORT INFORMATION
  Report Type: 
  Country: CA (occurrence: CA)
  Receive Date: 20110617
  Receipt Date: 20121109
  Transmission Date: 20130627
  Serious: Yes (Hospitalization, Other)
  Sender: FDA-Public Use
  Company Number: PHMT2005CA00511

PATIENT
  Sex: Female

DRUGS (3)
  1. SANDOSTATIN LAR [Suspect]
     Indication: CARCINOID TUMOUR
     Dosage: 20 mg, every 4 weeks
     Route: 030
     Dates: start: 20021111
  2. METOPROLOL [Concomitant]
  3. OMEPRAZOLE [Concomitant]

REACTIONS (26)
  - Sepsis [Unknown]
  - Metastases to liver [Unknown]
  - Malignant neoplasm progression [Unknown]
  - Polyp [Recovered/Resolved]
  - Rectal haemorrhage [Recovered/Resolved]
  - Jaundice [Unknown]
  - Hypoaesthesia [Recovered/Resolved]
  - Flushing [Unknown]
  - Panic attack [Unknown]
  - Dysgeusia [Unknown]
  - Hunger [Unknown]
  - Eructation [Unknown]
  - Throat irritation [Unknown]
  - Dyspnoea [Unknown]
  - Decreased appetite [Unknown]
  - Anxiety [Unknown]
  - Blood pressure increased [Unknown]
  - Dyspepsia [Unknown]
  - Diarrhoea [Unknown]
  - Hyperglycaemia [Unknown]
  - Nausea [Unknown]
  - Bradycardia [Unknown]
  - Hypoglycaemia [Unknown]
  - Asthenia [Unknown]
  - Fatigue [Unknown]
  - Abdominal distension [Unknown]
